FAERS Safety Report 8132492-9 (Version None)
Quarter: 2012Q1

REPORT INFORMATION
  Report Type: 
  Country: None (occurrence: None)
  Receive Date: 20120213
  Receipt Date: 20120209
  Transmission Date: 20120608
  Serious: Yes (Death)
  Sender: FDA-Public Use
  Company Number: AU-BRISTOL-MYERS SQUIBB COMPANY-16244527

PATIENT
  Age: 47 Year

DRUGS (1)
  1. YERVOY [Suspect]
     Indication: METASTATIC MALIGNANT MELANOMA
     Dosage: INFUSION. 2 INFU:14OCT11
     Dates: start: 20110923

REACTIONS (1)
  - NEOPLASM MALIGNANT [None]
